FAERS Safety Report 8179928-5 (Version None)
Quarter: 2012Q1

REPORT INFORMATION
  Report Type: 
  Country: None (occurrence: None)
  Receive Date: 20120302
  Receipt Date: 20120220
  Transmission Date: 20120608
  Serious: Yes (Hospitalization, Other)
  Sender: FDA-Public Use
  Company Number: FR-BRISTOL-MYERS SQUIBB COMPANY-16412710

PATIENT
  Age: 94 Year
  Sex: Male

DRUGS (10)
  1. CREON [Concomitant]
  2. DOMPERIDONE [Concomitant]
  3. CORGARD [Concomitant]
  4. PANTOPRAZOLE [Concomitant]
  5. TANAKAN [Concomitant]
  6. LEVOTHYROXINE SODIUM [Concomitant]
  7. ZOCOR [Concomitant]
  8. ZOLPIDEM [Concomitant]
  9. ALLOPURINOL [Concomitant]
  10. COUMADIN [Suspect]
     Indication: ATRIAL FIBRILLATION
     Route: 048
     Dates: end: 20100428

REACTIONS (3)
  - SUBARACHNOID HAEMORRHAGE [None]
  - FALL [None]
  - HEAD INJURY [None]
